FAERS Safety Report 5120271-6 (Version None)
Quarter: 2006Q3

REPORT INFORMATION
  Report Type: 
  Country: None (occurrence: None)
  Receive Date: 20060928
  Receipt Date: 20060920
  Transmission Date: 20061208
  Serious: Yes (Other)
  Sender: FDA-Public Use
  Company Number: 2006105729

PATIENT
  Age: 71 Year
  Sex: Female

DRUGS (3)
  1. XALATAN [Suspect]
     Indication: GLAUCOMA
     Dosage: 1 IN 1 D, TOPICAL
     Route: 061
  2. DICLOFENAC SODIUM [Concomitant]
  3. AZOPT [Concomitant]

REACTIONS (5)
  - MACULAR DEGENERATION [None]
  - MACULAR OEDEMA [None]
  - OPTIC DISC DISORDER [None]
  - VENOUS THROMBOSIS [None]
  - VISUAL ACUITY REDUCED [None]
